FAERS Safety Report 9836552 (Version 1)
Quarter: 2014Q1

REPORT INFORMATION
  Report Type: Spontaneous
  Country: US (occurrence: None)
  Receive Date: 20140116
  Receipt Date: 20140116
  Transmission Date: 20141002
  Serious: Yes (Other)
  Sender: FDA-Public Use
  Company Number: None

PATIENT
  Age: 38 Year
  Sex: Male
  Weight: 88 kg

DRUGS (8)
  1. REMBRANDT 2 HOUR WHITENING KIT [Suspect]
     Indication: DENTAL COSMETIC PROCEDURE
     Dosage: AS ADVISED
     Route: 004
     Dates: start: 20130322, end: 20130322
  2. CALCIUM MAGNESIUM [Concomitant]
  3. KIRKLAND ALLER  CLEAR [Concomitant]
  4. MAGNESIUM [Concomitant]
  5. PHOSPHORUS [Concomitant]
  6. VITAMIN C [Concomitant]
  7. VITAMIN D [Concomitant]
  8. TESTOSTERONE SHOTS [Concomitant]

REACTIONS (23)
  - Oedema mouth [None]
  - Hypoaesthesia oral [None]
  - Lip pain [None]
  - Lip swelling [None]
  - Gingival swelling [None]
  - Speech disorder [None]
  - Paraesthesia [None]
  - Gingival inflammation [None]
  - Lip discolouration [None]
  - Gingival pain [None]
  - Hypoaesthesia oral [None]
  - Lip pain [None]
  - Gingival pain [None]
  - Insomnia [None]
  - Lip injury [None]
  - Mouth injury [None]
  - Chemical burn of gastrointestinal tract [None]
  - Stomatitis [None]
  - Aphthous stomatitis [None]
  - Oral mucosal exfoliation [None]
  - Drug ineffective [None]
  - Gingivitis [None]
  - Lymphadenopathy [None]
